FAERS Safety Report 4565952-8 (Version None)
Quarter: 2005Q1

REPORT INFORMATION
  Report Type: 
  Country: None (occurrence: None)
  Receive Date: 20050128
  Receipt Date: 20050113
  Transmission Date: 20050727
  Serious: Yes (Hospitalization)
  Sender: FDA-Public Use
  Company Number: 2005PK00093

PATIENT
  Age: 80 Year
  Sex: Female

DRUGS (11)
  1. SEROQUEL [Suspect]
     Dosage: 25 MG DAILY PO
     Route: 048
     Dates: start: 20040915, end: 20040916
  2. LORAZEPAM [Suspect]
     Dosage: 3 MG DAILY PO
     Route: 048
     Dates: start: 20040913, end: 20040914
  3. LORAZEPAM [Suspect]
     Dosage: 2 MG DAILY PO
     Route: 048
     Dates: start: 20040915, end: 20040916
  4. LORAZEPAM [Suspect]
     Dosage: 1 MG DAILY PO
     Route: 048
     Dates: start: 20040917, end: 20040918
  5. ASASANTIN  - SLOW RELEASE [Concomitant]
  6. ZESTRIL [Concomitant]
  7. TENORMIN [Concomitant]
  8. ASPIRIN [Concomitant]
  9. ELTROXIN ^GLAXO^ [Concomitant]
  10. NEXIUM [Concomitant]
  11. CITALOPRAM [Concomitant]

REACTIONS (5)
  - COORDINATION ABNORMAL [None]
  - ENCEPHALOPATHY [None]
  - PSYCHIATRIC SYMPTOM [None]
  - SEDATION [None]
  - VERTIGO [None]
